FAERS Safety Report 8390387-X (Version None)
Quarter: 2012Q2

REPORT INFORMATION
  Report Type: 
  Country: None (occurrence: None)
  Receive Date: 20120529
  Receipt Date: 20120516
  Transmission Date: 20120825
  Serious: Yes (Other)
  Sender: FDA-Public Use
  Company Number: BR-JNJFOC-20120515223

PATIENT
  Sex: Male
  Weight: 93 kg

DRUGS (5)
  1. REMICADE [Suspect]
     Indication: ANKYLOSING SPONDYLITIS
     Route: 042
     Dates: start: 20080101
  2. ENALAPRIL MALEATE [Concomitant]
     Indication: HYPERTENSION
     Route: 065
     Dates: start: 20070101
  3. ALL OTHER THERAPEUTICS [Concomitant]
     Indication: BLOOD CHOLESTEROL INCREASED
     Route: 065
  4. ALL OTHER THERAPEUTICS [Concomitant]
     Indication: DIABETES MELLITUS
     Route: 065
  5. PREDNISONE TAB [Suspect]
     Indication: PRODUCT USED FOR UNKNOWN INDICATION
     Route: 065

REACTIONS (2)
  - DIABETES MELLITUS [None]
  - PAIN [None]
